FAERS Safety Report 7523912-9 (Version None)
Quarter: 2011Q2

REPORT INFORMATION
  Report Type: 
  Country: None (occurrence: None)
  Receive Date: 20110603
  Receipt Date: 20110531
  Transmission Date: 20111010
  Serious: Yes (Other)
  Sender: FDA-Public Use
  Company Number: JP-MERCK-1104USA03932

PATIENT
  Age: 38 Year
  Sex: Female

DRUGS (5)
  1. PRIMAXIN [Suspect]
     Indication: ENDOCARDITIS
     Route: 065
  2. GENTAMICIN SULFATE [Suspect]
     Indication: ENDOCARDITIS
     Route: 065
  3. CEFAZOLIN SODIUM [Concomitant]
     Indication: ENDOCARDITIS
     Route: 065
  4. TEICOPLANIN [Concomitant]
     Indication: ENDOCARDITIS
     Route: 041
  5. GENINAX [Concomitant]
     Indication: ENDOCARDITIS
     Route: 048

REACTIONS (2)
  - INNER EAR DISORDER [None]
  - AGRANULOCYTOSIS [None]
